FAERS Safety Report 21109852 (Version 1)
Quarter: 2022Q3

REPORT INFORMATION
  Report Type: Spontaneous
  Country: US (occurrence: None)
  Receive Date: 20220720
  Receipt Date: 20220720
  Transmission Date: 20221027
  Serious: No
  Sender: FDA-Public Use
  Company Number: None

PATIENT
  Age: 67 Year
  Sex: Male

DRUGS (16)
  1. WELIREG [Suspect]
     Active Substance: BELZUTIFAN
     Indication: Renal cancer
     Dosage: FREQUENCY : DAILY;?
     Route: 048
     Dates: start: 202204, end: 20220719
  2. ASPIRIN [Concomitant]
     Active Substance: ASPIRIN
  3. AMLODIPINE [Concomitant]
     Active Substance: AMLODIPINE BESYLATE
  4. ATORVASTATIN [Concomitant]
     Active Substance: ATORVASTATIN
  5. BASAGLAR [Concomitant]
     Active Substance: INSULIN GLARGINE
  6. CITALOPRAM [Concomitant]
     Active Substance: CITALOPRAM HYDROBROMIDE
  7. COLACE [Concomitant]
     Active Substance: DOCUSATE SODIUM
  8. COMPAZINE [Concomitant]
     Active Substance: PROCHLORPERAZINE MALEATE
  9. KENALOG [Concomitant]
     Active Substance: TRIAMCINOLONE ACETONIDE
  10. LISINOPRIL [Concomitant]
     Active Substance: LISINOPRIL
  11. MELATONIN [Concomitant]
     Active Substance: MELATONIN
  12. MIRALAX [Concomitant]
     Active Substance: POLYETHYLENE GLYCOL 3350
  13. OXYCODONE [Concomitant]
     Active Substance: OXYCODONE
  14. OZEMPIC [Concomitant]
     Active Substance: SEMAGLUTIDE
  15. TYLENOL [Concomitant]
     Active Substance: ACETAMINOPHEN
  16. ZYRTEC [Concomitant]
     Active Substance: CETIRIZINE HYDROCHLORIDE

REACTIONS (2)
  - Disease progression [None]
  - Scan abnormal [None]
